FAERS Safety Report 6876527-X (Version None)
Quarter: 2010Q3

REPORT INFORMATION
  Report Type: 
  Country: None (occurrence: None)
  Receive Date: 20100727
  Receipt Date: 20100719
  Transmission Date: 20110219
  Serious: Yes (Hospitalization)
  Sender: FDA-Public Use
  Company Number: DE-CEPHALON-2010003779

PATIENT
  Sex: Female
  Weight: 54 kg

DRUGS (2)
  1. EFFENTORA [Suspect]
     Indication: MUSCULOSKELETAL PAIN
     Route: 002
     Dates: start: 20090201, end: 20091101
  2. ACTIQ [Suspect]
     Indication: MUSCULOSKELETAL PAIN
     Route: 002
     Dates: start: 20090201, end: 20091101

REACTIONS (3)
  - DRUG ABUSE [None]
  - DRUG DEPENDENCE [None]
  - DRUG PRESCRIBING ERROR [None]
